FAERS Safety Report 17207780 (Version 8)
Quarter: 2020Q3

REPORT INFORMATION
  Report Type: Spontaneous
  Country: US (occurrence: US)
  Receive Date: 20191227
  Receipt Date: 20200918
  Transmission Date: 20201102
  Serious: No
  Sender: FDA-Public Use
  Company Number: US-VERTEX PHARMACEUTICALS-2019-013229

PATIENT
  Age: 35 Year
  Sex: Female
  Weight: 75 kg

DRUGS (13)
  1. INVEGA [Suspect]
     Active Substance: PALIPERIDONE
     Dosage: 3 MG
     Route: 065
  2. TRIKAFTA [Suspect]
     Active Substance: ELEXACAFTOR\IVACAFTOR\TEZACAFTOR
     Indication: CYSTIC FIBROSIS
     Dosage: REDUCED DOSAGE (MORNING DOSE ON MON AND THURS)
     Route: 048
     Dates: start: 20191205
  3. PULMOZYME [Concomitant]
     Active Substance: DORNASE ALFA
     Dosage: UNK
  4. AZITHROMYCIN ANHYDROUS. [Concomitant]
     Active Substance: AZITHROMYCIN ANHYDROUS
     Dosage: UNK
  5. ALBUTEROL [SALBUTAMOL SULFATE] [Concomitant]
     Active Substance: ALBUTEROL SULFATE
  6. INVEGA [Suspect]
     Active Substance: PALIPERIDONE
     Indication: MENTAL DISORDER
     Dosage: 6 MG
     Route: 065
  7. CAYSTON [Concomitant]
     Active Substance: AZTREONAM
     Dosage: UNK
  8. KITABIS PAK [Concomitant]
     Active Substance: TOBRAMYCIN
     Dosage: UNK
  9. TRIKAFTA [Suspect]
     Active Substance: ELEXACAFTOR\IVACAFTOR\TEZACAFTOR
     Dosage: FULL DOSE, 2 TABS OF 100MG ELEXA/ 50 MG TEZA/ 75 MG IVA AM; 1 TAB 150 MG IVA PM
     Route: 048
  10. NEXIUM I.V. [Concomitant]
     Active Substance: ESOMEPRAZOLE SODIUM
     Dosage: UNK
  11. PROVENTIL [Concomitant]
     Active Substance: ALBUTEROL
     Dosage: UNK
  12. KETOCONAZOLE. [Concomitant]
     Active Substance: KETOCONAZOLE
  13. TOBI [Concomitant]
     Active Substance: TOBRAMYCIN

REACTIONS (10)
  - Headache [Not Recovered/Not Resolved]
  - Alopecia [Unknown]
  - Asthma [Recovered/Resolved]
  - Increased appetite [Not Recovered/Not Resolved]
  - Hypothyroidism [Not Recovered/Not Resolved]
  - Paranasal sinus hypersecretion [Unknown]
  - Muscle twitching [Not Recovered/Not Resolved]
  - Fatigue [Unknown]
  - Weight increased [Not Recovered/Not Resolved]
  - Constipation [Recovered/Resolved]

NARRATIVE: CASE EVENT DATE: 201912
